FAERS Safety Report 5683469-4 (Version None)
Quarter: 2008Q1

REPORT INFORMATION
  Report Type: 
  Country: None (occurrence: None)
  Receive Date: 20080326
  Receipt Date: 20080317
  Transmission Date: 20080703
  Serious: No
  Sender: FDA-Public Use
  Company Number: TPA2008A00325

PATIENT
  Sex: Female

DRUGS (7)
  1. ACTOS [Suspect]
  2. BYETTA [Suspect]
     Dates: start: 20071129
  3. HUMALOG MIX 75/25 [Suspect]
     Dosage: 10 U, TOTAL DAILY DOSE, SQ
     Route: 058
     Dates: start: 20071129
  4. GLUCOVANCE [Suspect]
  5. GLIMEPIRIDE [Suspect]
  6. JANUMET (ALL OTHER THERAPEUTIC PRODUCTS) [Concomitant]
  7. JANUVIA (ALL OTHER THERAPEUTIC PRODUCTS) [Concomitant]

REACTIONS (3)
  - HYPOGLYCAEMIA [None]
  - INCORRECT DOSE ADMINISTERED [None]
  - SELF-MEDICATION [None]
